FAERS Safety Report 13942223 (Version 1)
Quarter: 2017Q3

REPORT INFORMATION
  Report Type: Spontaneous
  Country: US (occurrence: None)
  Receive Date: 20170907
  Receipt Date: 20170907
  Transmission Date: 20171127
  Serious: Yes (Hospitalization)
  Sender: FDA-Public Use
  Company Number: None

PATIENT
  Age: 90 Year
  Sex: Male
  Weight: 47.6 kg

DRUGS (2)
  1. LORAZEPAM. [Suspect]
     Active Substance: LORAZEPAM
     Route: 042
     Dates: start: 20170601, end: 20170601
  2. MORPHINE [Suspect]
     Active Substance: MORPHINE
     Route: 042
     Dates: start: 20170601, end: 20170601

REACTIONS (3)
  - Confusional state [None]
  - Respiratory depression [None]
  - Depressed level of consciousness [None]

NARRATIVE: CASE EVENT DATE: 20170601
